FAERS Safety Report 22123158 (Version 1)
Quarter: 2023Q1

REPORT INFORMATION
  Report Type: Report from Study
  Country: IN (occurrence: IN)
  Receive Date: 20230322
  Receipt Date: 20230322
  Transmission Date: 20230417
  Serious: Yes (Other)
  Sender: FDA-Public Use
  Company Number: IN-002147023-NVSC2023IN061178

PATIENT
  Age: 36 Year
  Sex: Male

DRUGS (2)
  1. SIMULECT [Suspect]
     Active Substance: BASILIXIMAB
     Indication: Renal transplant
     Dosage: 20 UNK
     Route: 042
     Dates: start: 20230203, end: 20230203
  2. SIMULECT [Suspect]
     Active Substance: BASILIXIMAB
     Dosage: 20 UNK
     Route: 042
     Dates: start: 20230207, end: 20230207

REACTIONS (1)
  - Transplant rejection [Recovering/Resolving]

NARRATIVE: CASE EVENT DATE: 20230216
